FAERS Safety Report 15805224 (Version 1)
Quarter: 2019Q1

REPORT INFORMATION
  Report Type: Report from Study
  Country: US (occurrence: US)
  Receive Date: 20190110
  Receipt Date: 20190110
  Transmission Date: 20190417
  Serious: Yes (Death)
  Sender: FDA-Public Use
  Company Number: US-TEVA-2019-US-994808

PATIENT
  Age: 62 Year
  Sex: Male

DRUGS (5)
  1. CARISOPRODOL. [Suspect]
     Active Substance: CARISOPRODOL
     Indication: ACCIDENTAL OVERDOSE
     Route: 065
  2. BUPROPION. [Suspect]
     Active Substance: BUPROPION
     Indication: ACCIDENTAL OVERDOSE
     Route: 048
  3. MEPROBAMATE. [Suspect]
     Active Substance: MEPROBAMATE
     Indication: ACCIDENTAL OVERDOSE
     Route: 065
  4. MEMANTINE. [Suspect]
     Active Substance: MEMANTINE
     Indication: ACCIDENTAL OVERDOSE
     Route: 065
  5. DONEPEZIL. [Suspect]
     Active Substance: DONEPEZIL
     Indication: ACCIDENTAL OVERDOSE
     Route: 065

REACTIONS (2)
  - Accidental overdose [Fatal]
  - Toxicity to various agents [Fatal]
